FAERS Safety Report 24202020 (Version 2)
Quarter: 2024Q3

REPORT INFORMATION
  Report Type: Report from Study
  Country: US (occurrence: US)
  Receive Date: 20240812
  Receipt Date: 20240816
  Transmission Date: 20241016
  Serious: No
  Sender: PFIZER
  Company Number: US-SEATTLE GENETICS-2020SGN02696

PATIENT
  Age: 60 Year
  Sex: Female

DRUGS (6)
  1. TUKYSA [Suspect]
     Active Substance: TUCATINIB
     Indication: Breast cancer female
     Dosage: 200MG TWICE DAILY
     Route: 048
     Dates: start: 20240424
  2. TUKYSA [Suspect]
     Active Substance: TUCATINIB
     Dosage: 200 MG, 2X/DAY
     Route: 048
     Dates: start: 20240425
  3. TUKYSA [Suspect]
     Active Substance: TUCATINIB
     Dosage: 200 MG, 2X/DAY; WITH OR WITHOUT FOOD
     Route: 048
  4. TUKYSA [Suspect]
     Active Substance: TUCATINIB
     Dosage: UNK
  5. TUKYSA [Suspect]
     Active Substance: TUCATINIB
     Dosage: 200MG TWICE DAILY
     Route: 048
  6. CAPECITABINE [Suspect]
     Active Substance: CAPECITABINE

REACTIONS (13)
  - Diarrhoea [Not Recovered/Not Resolved]
  - Rash pruritic [Unknown]
  - Fatigue [Recovering/Resolving]
  - Abdominal pain upper [Not Recovered/Not Resolved]
  - Nausea [Not Recovered/Not Resolved]
  - Vomiting [Not Recovered/Not Resolved]
  - Constipation [Not Recovered/Not Resolved]
  - Symptom recurrence [Not Recovered/Not Resolved]
  - Dyspepsia [Unknown]
  - Memory impairment [Recovering/Resolving]
  - Personality change [Not Recovered/Not Resolved]
  - Neoplasm progression [Unknown]
  - Abdominal discomfort [Recovering/Resolving]

NARRATIVE: CASE EVENT DATE: 20240602
